FAERS Safety Report 11753080 (Version 4)
Quarter: 2015Q4

REPORT INFORMATION
  Report Type: Spontaneous
  Country: US (occurrence: US)
  Receive Date: 20151119
  Receipt Date: 20151222
  Transmission Date: 20160304
  Serious: Yes (Other)
  Sender: FDA-Public Use
  Company Number: US-TEVA-610362USA

PATIENT
  Age: 37 Year
  Sex: Male

DRUGS (10)
  1. HCTZ [Concomitant]
     Active Substance: HYDROCHLOROTHIAZIDE
  2. AMLODIPINE [Concomitant]
     Active Substance: AMLODIPINE BESYLATE
  3. OXYCODONE [Concomitant]
     Active Substance: OXYCODONE
  4. ZECUITY [Suspect]
     Active Substance: SUMATRIPTAN SUCCINATE
     Route: 062
     Dates: start: 201510
  5. TRAMADOL. [Concomitant]
     Active Substance: TRAMADOL
  6. ADVIL [Concomitant]
     Active Substance: IBUPROFEN
  7. LEVSIN [Concomitant]
     Active Substance: HYOSCYAMINE SULFATE
  8. PERCOCET [Concomitant]
     Active Substance: ACETAMINOPHEN\OXYCODONE HYDROCHLORIDE
  9. RELPAX [Concomitant]
     Active Substance: ELETRIPTAN HYDROBROMIDE
  10. VALIDUM [Concomitant]

REACTIONS (6)
  - Application site burn [Recovered/Resolved]
  - Drug ineffective [Unknown]
  - Application site pain [Unknown]
  - Application site erythema [Unknown]
  - Application site reaction [Unknown]
  - Application site swelling [Unknown]

NARRATIVE: CASE EVENT DATE: 20151102
